FAERS Safety Report 21018121 (Version 3)
Quarter: 2022Q3

REPORT INFORMATION
  Report Type: Spontaneous
  Country: GB (occurrence: GB)
  Receive Date: 20220628
  Receipt Date: 20220721
  Transmission Date: 20221026
  Serious: Yes (Other)
  Sender: FDA-Public Use
  Company Number: GB-VERTEX PHARMACEUTICALS-2022-002219

PATIENT
  Age: 9 Year
  Sex: Female

DRUGS (11)
  1. IVACAFTOR\TEZACAFTOR [Suspect]
     Active Substance: IVACAFTOR\TEZACAFTOR
     Indication: Cystic fibrosis
     Dosage: 50 MG TEZACAFTOR/75MG IVACAFTOR IN THE MORNING
     Route: 048
     Dates: start: 20210201, end: 20220125
  2. IVACAFTOR\TEZACAFTOR [Suspect]
     Active Substance: IVACAFTOR\TEZACAFTOR
     Dosage: 1 TABLET (50MG/75MG), IN THE MORNING
     Route: 048
     Dates: start: 202202
  3. KALYDECO [Suspect]
     Active Substance: IVACAFTOR
     Indication: Cystic fibrosis
     Dosage: AT NIGHT
     Route: 048
     Dates: start: 20210201, end: 20220125
  4. KALYDECO [Suspect]
     Active Substance: IVACAFTOR
     Dosage: 1 TABLET (75MG), IN THE EVENING
     Route: 048
     Dates: start: 202202
  5. COLISTIN [Concomitant]
     Active Substance: COLISTIN
     Dosage: NEBULIZED FOR THE PAST 18 MONTHS
  6. COLISTIN [Concomitant]
     Active Substance: COLISTIN
     Dosage: NEBULIZED FOR THE PAST 18 MONTHS
  7. COLISTIN [Concomitant]
     Active Substance: COLISTIN
     Dosage: NEBULIZED FOR THE PAST 18 MONTHS
  8. FLUCLOXACILLIN [Concomitant]
     Active Substance: FLUCLOXACILLIN
  9. ALBUTEROL [Concomitant]
     Active Substance: ALBUTEROL
  10. CHOLECALCIFEROL [Concomitant]
     Active Substance: CHOLECALCIFEROL
  11. AZITHROMYCIN [Concomitant]
     Active Substance: AZITHROMYCIN

REACTIONS (1)
  - Cataract [Unknown]

NARRATIVE: CASE EVENT DATE: 20220120
